FAERS Safety Report 7377688-9 (Version None)
Quarter: 2011Q1

REPORT INFORMATION
  Report Type: 
  Country: None (occurrence: None)
  Receive Date: 20110328
  Receipt Date: 20110317
  Transmission Date: 20110831
  Serious: Yes (Other)
  Sender: FDA-Public Use
  Company Number: JP-JNJFOC-20110310150

PATIENT
  Age: 6 Decade
  Sex: Male

DRUGS (11)
  1. CRAVIT [Suspect]
     Indication: NASOPHARYNGITIS
     Route: 048
  2. DASEN [Concomitant]
     Route: 065
  3. MUCODYNE [Concomitant]
     Route: 065
  4. FLAVERIC [Concomitant]
     Route: 065
  5. CALONAL [Suspect]
     Indication: NASOPHARYNGITIS
     Route: 048
  6. KUBACRON [Concomitant]
     Route: 065
  7. HUMALOG [Concomitant]
     Route: 065
  8. DIOVAN [Concomitant]
     Route: 065
  9. LANTUS [Concomitant]
     Route: 065
  10. LOXONIN [Suspect]
     Indication: NASOPHARYNGITIS
     Route: 048
  11. AMLODIPINE [Concomitant]
     Route: 065

REACTIONS (1)
  - PNEUMONIA [None]
